FAERS Safety Report 11126679 (Version 1)
Quarter: 2015Q2

REPORT INFORMATION
  Report Type: Spontaneous
  Country: US (occurrence: US)
  Receive Date: 20150520
  Receipt Date: 20150520
  Transmission Date: 20150821
  Serious: No
  Sender: FDA-Public Use
  Company Number: US-GLAXOSMITHKLINE-US2015068437

PATIENT
  Age: 67 Year
  Sex: Female

DRUGS (12)
  1. ATORVASTATIN [Concomitant]
     Active Substance: ATORVASTATIN
  2. HYDROCODONE [Concomitant]
     Active Substance: HYDROCODONE
  3. MAGNESIUM OXIDE. [Concomitant]
     Active Substance: MAGNESIUM OXIDE
  4. PRILOSEC [Concomitant]
     Active Substance: OMEPRAZOLE MAGNESIUM
  5. BUPROPION [Concomitant]
     Active Substance: BUPROPION
  6. MONTELUKAST [Concomitant]
     Active Substance: MONTELUKAST SODIUM
  7. SPIRIVA [Concomitant]
     Active Substance: TIOTROPIUM BROMIDE MONOHYDRATE
  8. BREO ELLIPTA [Suspect]
     Active Substance: FLUTICASONE FUROATE\VILANTEROL TRIFENATATE
     Indication: CHRONIC OBSTRUCTIVE PULMONARY DISEASE
     Dosage: 1 DF, 1D
     Dates: start: 201407
  9. ATENOLOL. [Concomitant]
     Active Substance: ATENOLOL
  10. GUAIFENESIN. [Concomitant]
     Active Substance: GUAIFENESIN
  11. PREMARIN [Concomitant]
     Active Substance: ESTROGENS, CONJUGATED
  12. NYSTATIN. [Suspect]
     Active Substance: NYSTATIN

REACTIONS (2)
  - Diarrhoea [Recovered/Resolved]
  - Oral candidiasis [Not Recovered/Not Resolved]

NARRATIVE: CASE EVENT DATE: 201502
